FAERS Safety Report 25062173 (Version 1)
Quarter: 2025Q1

REPORT INFORMATION
  Report Type: Report from Study
  Country: JP (occurrence: JP)
  Receive Date: 20250311
  Receipt Date: 20250311
  Transmission Date: 20250408
  Serious: Yes (Hospitalization)
  Sender: TEVA
  Company Number: JP-TEVA-VS-3306041

PATIENT
  Age: 8 Year
  Sex: Female

DRUGS (2)
  1. PREDNISOLONE [Suspect]
     Active Substance: PREDNISOLONE
     Indication: B-cell type acute leukaemia
     Route: 065
  2. PIPERACILLIN [Concomitant]
     Active Substance: PIPERACILLIN
     Indication: Evidence based treatment
     Route: 065

REACTIONS (5)
  - Haemophagocytic lymphohistiocytosis [Recovered/Resolved]
  - Disseminated intravascular coagulation [Recovered/Resolved]
  - Pseudomonas infection [Recovered/Resolved]
  - Splenomegaly [Recovered/Resolved]
  - Pancytopenia [Recovered/Resolved]
